FAERS Safety Report 23501514 (Version 1)
Quarter: 2024Q1

REPORT INFORMATION
  Report Type: Report from Study
  Country: US (occurrence: US)
  Receive Date: 20240208
  Receipt Date: 20240208
  Transmission Date: 20240410
  Serious: Yes (Other)
  Sender: FDA-Public Use
  Company Number: US-JNJFOC-20240215632

PATIENT
  Age: 53 Year
  Sex: Female

DRUGS (1)
  1. SPRAVATO [Suspect]
     Active Substance: ESKETAMINE
     Indication: Depression
     Dosage: FIRST TREATMENT
     Dates: start: 20240129

REACTIONS (2)
  - Meniere^s disease [Unknown]
  - Vestibular migraine [Unknown]

NARRATIVE: CASE EVENT DATE: 20240101
